FAERS Safety Report 18390966 (Version 1)
Quarter: 2020Q4

REPORT INFORMATION
  Report Type: Spontaneous
  Country: ZA (occurrence: ZA)
  Receive Date: 20201016
  Receipt Date: 20201016
  Transmission Date: 20210114
  Serious: Yes (Hospitalization, Other)
  Sender: FDA-Public Use
  Company Number: ZA-LUPIN PHARMACEUTICALS INC.-2020-07147

PATIENT
  Sex: Male

DRUGS (12)
  1. DIAGLUCIDE [Suspect]
     Active Substance: GLICLAZIDE
     Indication: DIABETES MELLITUS
     Dosage: 60 MILLIGRAM, UNK
     Route: 048
  2. AMLODIPINE [Suspect]
     Active Substance: AMLODIPINE BESYLATE
     Indication: HYPERTENSION
     Dosage: 10 MILLIGRAM, UNK
     Route: 048
  3. CIPLA WARFARIN [WARFARIN SODIUM] [Suspect]
     Active Substance: WARFARIN SODIUM
     Indication: ANTICOAGULANT THERAPY
     Dosage: 5 MILLIGRAM, UNK
     Route: 048
  4. CIPLA-SIMVASTATIN [Suspect]
     Active Substance: SIMVASTATIN
     Indication: BLOOD CHOLESTEROL ABNORMAL
     Dosage: 40 MILLIGRAM, UNK
     Route: 048
  5. AUSTELL METFORMIN [Suspect]
     Active Substance: METFORMIN HYDROCHLORIDE
     Indication: DIABETES MELLITUS
     Dosage: 500 MILLIGRAM, UNK
     Route: 048
  6. RIDAQ [Suspect]
     Active Substance: HYDROCHLOROTHIAZIDE
     Indication: DIURETIC THERAPY
     Dosage: 12.5 MILLIGRAM, UNK
     Route: 048
  7. INSULIN DEFALAN NOS [Suspect]
     Active Substance: INSULIN DEFALAN (BOVINE)\INSULIN DEFALAN (PORCINE)
     Indication: DIABETES MELLITUS
     Dosage: 100 INTERNATIONAL UNIT, UNK
     Route: 030
  8. CYNT [MOXONIDINE] [Suspect]
     Active Substance: MOXONIDINE
     Indication: HYPERTENSION
     Dosage: 0.4 MILLIGRAM, UNK
     Route: 048
  9. PURICOS [Suspect]
     Active Substance: ALLOPURINOL
     Indication: GOUT
     Dosage: 300 MILLIGRAM, UNK
     Route: 048
  10. ENAP-CO [Suspect]
     Active Substance: ENALAPRIL MALEATE\HYDROCHLOROTHIAZIDE
     Indication: HYPERTENSION
     Dosage: 20/12.5MG, UNK
     Route: 048
  11. CARLOC [Suspect]
     Active Substance: CARVEDILOL
     Indication: CARDIAC DISORDER
     Dosage: 25 MILLIGRAM, UNK
     Route: 048
  12. PURGOXIN [Suspect]
     Active Substance: DIGOXIN
     Indication: CARDIAC DISORDER
     Dosage: 0.25 MILLIGRAM, UNK
     Route: 048

REACTIONS (1)
  - Cerebral haemorrhage [Unknown]
